FAERS Safety Report 13665000 (Version 2)
Quarter: 2017Q3

REPORT INFORMATION
  Report Type: Other
  Country: JP (occurrence: JP)
  Receive Date: 20170619
  Receipt Date: 20170810
  Transmission Date: 20171127
  Serious: Yes (Other)
  Sender: FDA-Public Use
  Company Number: JP-EMD SERONO-8163141

PATIENT
  Age: 34 Year
  Sex: Female

DRUGS (2)
  1. INTERFERON BETA-1A [Suspect]
     Active Substance: INTERFERON BETA-1A
     Indication: CLINICALLY ISOLATED SYNDROME
     Route: 030
  2. INTERFERON BETA-1A [Suspect]
     Active Substance: INTERFERON BETA-1A
     Route: 030

REACTIONS (2)
  - Blood triglycerides increased [Recovered/Resolved]
  - Autoimmune hypothyroidism [Recovered/Resolved]
